FAERS Safety Report 11993203 (Version 2)
Quarter: 2016Q1

REPORT INFORMATION
  Report Type: Spontaneous
  Country: CA (occurrence: CA)
  Receive Date: 20160203
  Receipt Date: 20160204
  Transmission Date: 20160526
  Serious: Yes (Disabling)
  Sender: FDA-Public Use
  Company Number: CA-TEVA-630951ACC

PATIENT
  Age: 65 Year
  Sex: Male

DRUGS (2)
  1. LAMIVUDINE AND ZIDOVUDINE [Suspect]
     Active Substance: LAMIVUDINE\ZIDOVUDINE
     Indication: HIV TEST POSITIVE
     Dosage: 2 DOSAGE FORMS DAILY;
     Route: 048
  2. SUSTIVA [Concomitant]
     Active Substance: EFAVIRENZ

REACTIONS (2)
  - Product substitution issue [Recovered/Resolved]
  - Palpitations [Recovered/Resolved]
